FAERS Safety Report 7318868-8 (Version None)
Quarter: 2011Q1

REPORT INFORMATION
  Report Type: 
  Country: None (occurrence: None)
  Receive Date: 20110228
  Receipt Date: 20101129
  Transmission Date: 20110831
  Serious: No
  Sender: FDA-Public Use
  Company Number: A0897537A

PATIENT
  Age: 60 Year
  Sex: Female

DRUGS (1)
  1. IMITREX [Suspect]
     Dosage: 6MG AS DIRECTED
     Route: 058
     Dates: start: 20090630

REACTIONS (1)
  - INFLUENZA [None]
